FAERS Safety Report 7715492-X (Version None)
Quarter: 2011Q3

REPORT INFORMATION
  Report Type: 
  Country: None (occurrence: None)
  Receive Date: 20110829
  Receipt Date: 20110823
  Transmission Date: 20111222
  Serious: Yes (Other)
  Sender: FDA-Public Use
  Company Number: CA-JNJFOC-20110811515

PATIENT
  Sex: Female
  Weight: 88 kg

DRUGS (6)
  1. HYZAAR [Concomitant]
     Route: 048
  2. REMICADE [Suspect]
     Indication: ANKYLOSING SPONDYLITIS
     Route: 042
     Dates: start: 20110606
  3. EFFEXOR XR [Concomitant]
     Route: 048
  4. PANTOPRAZOLE [Concomitant]
     Route: 048
  5. REMICADE [Suspect]
     Route: 042
     Dates: start: 20110718
  6. MESALAMINE [Concomitant]
     Route: 048

REACTIONS (2)
  - BACK INJURY [None]
  - FALL [None]
